FAERS Safety Report 14668700 (Version 1)
Quarter: 2018Q1

REPORT INFORMATION
  Report Type: Spontaneous
  Country: US (occurrence: US)
  Receive Date: 20180322
  Receipt Date: 20180322
  Transmission Date: 20180509
  Serious: Yes (Hospitalization)
  Sender: FDA-Public Use
  Company Number: US-JNJFOC-20180313364

PATIENT
  Age: 54 Year
  Sex: Male

DRUGS (9)
  1. IMBRUVICA [Suspect]
     Active Substance: IBRUTINIB
     Indication: GRAFT VERSUS HOST DISEASE
     Route: 048
     Dates: start: 20170515
  2. IMBRUVICA [Suspect]
     Active Substance: IBRUTINIB
     Indication: GRAFT VERSUS HOST DISEASE
     Route: 048
  3. IMBRUVICA [Suspect]
     Active Substance: IBRUTINIB
     Indication: GRAFT VERSUS HOST DISEASE
     Route: 048
  4. CLINDAMYCIN. [Concomitant]
     Active Substance: CLINDAMYCIN
  5. IMBRUVICA [Suspect]
     Active Substance: IBRUTINIB
     Indication: BONE MARROW TRANSPLANT REJECTION
     Route: 048
  6. LEXAPRO [Concomitant]
     Active Substance: ESCITALOPRAM OXALATE
  7. IMBRUVICA [Suspect]
     Active Substance: IBRUTINIB
     Indication: BONE MARROW TRANSPLANT REJECTION
     Route: 048
     Dates: start: 20170515
  8. TAMSULOSIN [Concomitant]
     Active Substance: TAMSULOSIN
  9. IMBRUVICA [Suspect]
     Active Substance: IBRUTINIB
     Indication: BONE MARROW TRANSPLANT REJECTION
     Route: 048

REACTIONS (1)
  - Thrombocytopenia [Not Recovered/Not Resolved]

NARRATIVE: CASE EVENT DATE: 201712
